FAERS Safety Report 9720955 (Version 2)
Quarter: 2013Q4

REPORT INFORMATION
  Report Type: Spontaneous
  Country: DE (occurrence: DE)
  Receive Date: 20131129
  Receipt Date: 20131129
  Transmission Date: 20140711
  Serious: Yes (Life-Threatening, Hospitalization, Other)
  Sender: FDA-Public Use
  Company Number: DE-B.I. PHARMACEUTICALS,INC./RIDGEFIELD-2013-BI-27260DE

PATIENT
  Age: 77 Year
  Sex: Male
  Weight: 78 kg

DRUGS (6)
  1. PRADAXA [Suspect]
     Indication: CEREBROVASCULAR ACCIDENT
     Dates: start: 201307
  2. PRADAXA [Suspect]
     Indication: ATRIAL FIBRILLATION
  3. DELIX 10 [Concomitant]
     Dosage: 1 ANZ
  4. HCT 12.5 [Concomitant]
     Dosage: 1 ANZ
  5. TOREM 10 [Concomitant]
     Dosage: 1 ANZ
  6. FRAXIPARIN 0.6 [Concomitant]
     Indication: ANTICOAGULANT THERAPY
     Dosage: 1 ANZ
     Route: 058

REACTIONS (7)
  - Subdural haematoma [Recovered/Resolved with Sequelae]
  - Disturbance in attention [Unknown]
  - Aphasia [Unknown]
  - Infarction [Unknown]
  - Coma [Unknown]
  - Cerebral infarction [Unknown]
  - Somnolence [Unknown]
